FAERS Safety Report 19051899 (Version 1)
Quarter: 2021Q1

REPORT INFORMATION
  Report Type: Spontaneous
  Country: US (occurrence: US)
  Receive Date: 20210324
  Receipt Date: 20210324
  Transmission Date: 20210420
  Serious: Yes (Other)
  Sender: FDA-Public Use
  Company Number: US-ROCHE-2792351

PATIENT
  Sex: Female

DRUGS (1)
  1. RITUXAN [Suspect]
     Active Substance: RITUXIMAB
     Indication: MULTIPLE SCLEROSIS
     Dosage: STRENGTH 10 MG/ML
     Route: 042
     Dates: start: 201806

REACTIONS (4)
  - General symptom [Unknown]
  - Multiple sclerosis relapse [Unknown]
  - Relapsing multiple sclerosis [Unknown]
  - Off label use [Unknown]
